FAERS Safety Report 5449584-5 (Version None)
Quarter: 2007Q3

REPORT INFORMATION
  Report Type: 
  Country: None (occurrence: None)
  Receive Date: 20070910
  Receipt Date: 20060511
  Transmission Date: 20080115
  Serious: Yes (Death, Other)
  Sender: FDA-Public Use
  Company Number: 2006VX001788

PATIENT
  Age: 74 Year
  Sex: Female

DRUGS (9)
  1. TASMAR [Suspect]
     Dosage: 300 MG; QD; PO
     Route: 048
  2. IBUPROFEN [Concomitant]
  3. TYLENOL NO. 2 [Concomitant]
  4. ARTANE [Concomitant]
  5. PROVERA [Concomitant]
  6. PERMAX [Concomitant]
  7. PREMARIN [Concomitant]
  8. ASPIRIN 10GR TIMED DISINTEGRATION TAB [Concomitant]
  9. SINEMET [Concomitant]

REACTIONS (22)
  - ANTINUCLEAR ANTIBODY POSITIVE [None]
  - BILIARY CIRRHOSIS [None]
  - BLOOD FIBRINOGEN DECREASED [None]
  - BLOOD GLUCOSE INCREASED [None]
  - BLOOD IRON INCREASED [None]
  - BLOOD LACTATE DEHYDROGENASE INCREASED [None]
  - BLOOD UREA INCREASED [None]
  - DEPRESSED LEVEL OF CONSCIOUSNESS [None]
  - DIARRHOEA [None]
  - GALLBLADDER DISORDER [None]
  - GLUCOSE URINE PRESENT [None]
  - HAEMATURIA [None]
  - HEPATIC NECROSIS [None]
  - HEPATITIS FULMINANT [None]
  - KETONURIA [None]
  - LYMPHADENOPATHY [None]
  - NEUTROPHILIA [None]
  - PLEURAL EFFUSION [None]
  - PORTAL HYPERTENSION [None]
  - RESPIRATORY DISTRESS [None]
  - VOMITING [None]
  - WEIGHT DECREASED [None]
